FAERS Safety Report 4983459-0 (Version None)
Quarter: 2006Q2

REPORT INFORMATION
  Report Type: 
  Country: None (occurrence: None)
  Receive Date: 20060426
  Receipt Date: 20051116
  Transmission Date: 20061013
  Serious: Yes (Death, Hospitalization)
  Sender: FDA-Public Use
  Company Number: US-MERCK-0511USA03042

PATIENT
  Age: 53 Year
  Sex: Male
  Weight: 109 kg

DRUGS (18)
  1. VIOXX [Suspect]
     Indication: OSTEOARTHRITIS
     Route: 048
     Dates: start: 19990901, end: 20031009
  2. TOPROL-XL [Concomitant]
     Indication: HYPERTENSION
     Route: 065
     Dates: start: 20001215, end: 20031001
  3. PAXIL [Concomitant]
     Route: 065
     Dates: start: 19990323, end: 20031001
  4. PREVACID [Concomitant]
     Route: 065
  5. ALLOPURINOL [Concomitant]
     Indication: GOUT
     Route: 065
  6. CEPHALEXIN [Concomitant]
     Route: 065
  7. ALTACE [Concomitant]
     Indication: HYPERTENSION
     Route: 065
     Dates: start: 20020430, end: 20031001
  8. NIASPAN [Concomitant]
     Route: 065
     Dates: start: 20020510, end: 20031001
  9. HYDROCHLOROTHIAZIDE [Concomitant]
     Indication: HYPERTENSION
     Route: 065
     Dates: start: 20020530, end: 20031001
  10. LIPITOR [Concomitant]
     Route: 065
     Dates: start: 20020719, end: 20031001
  11. FLOMAX (MORNIFLUMATE) [Concomitant]
     Indication: BENIGN PROSTATIC HYPERPLASIA
     Route: 065
     Dates: start: 20021226, end: 20031001
  12. NEXIUM [Concomitant]
     Route: 065
  13. NITROQUICK [Concomitant]
     Route: 065
  14. BIAXIN [Concomitant]
     Route: 065
  15. PREDNISONE [Concomitant]
     Route: 065
  16. HYOSCYAMINE [Concomitant]
     Route: 065
  17. LORAZEPAM [Concomitant]
     Route: 065
  18. PLAVIX [Concomitant]
     Indication: ARTERIOSCLEROSIS
     Route: 065
     Dates: start: 20030801, end: 20031001

REACTIONS (12)
  - ARTERIOSCLEROSIS [None]
  - BRADYCARDIA [None]
  - BREAST DISORDER [None]
  - CARDIAC DISORDER [None]
  - CARDIO-RESPIRATORY ARREST [None]
  - CEREBRAL HAEMORRHAGE [None]
  - CEREBROVASCULAR ACCIDENT [None]
  - CORONARY ARTERY DISEASE [None]
  - CORONARY ARTERY OCCLUSION [None]
  - GASTROOESOPHAGEAL REFLUX DISEASE [None]
  - HYPERTENSION [None]
  - SLEEP APNOEA SYNDROME [None]
